FAERS Safety Report 4734555-4 (Version None)
Quarter: 2005Q3

REPORT INFORMATION
  Report Type: 
  Country: None (occurrence: None)
  Receive Date: 20050721
  Receipt Date: 20050420
  Transmission Date: 20060218
  Serious: No
  Sender: FDA-Public Use
  Company Number: 2005SP000264

PATIENT
  Age: 56 Year
  Sex: Male
  Weight: 75.7507 kg

DRUGS (1)
  1. LUNESTA [Suspect]
     Dosage: 2 MG; HS; ORAL
     Route: 048

REACTIONS (1)
  - RENAL PAIN [None]
